FAERS Safety Report 8803596 (Version 2)
Quarter: 2013Q1

REPORT INFORMATION
  Report Type: Spontaneous
  Country: DE (occurrence: DE)
  Receive Date: 20120924
  Receipt Date: 20130320
  Transmission Date: 20140127
  Serious: Yes (Other)
  Sender: FDA-Public Use
  Company Number: DE-ASTRAZENECA-2012SE72561

PATIENT
  Sex: Female

DRUGS (3)
  1. SYMBICORT TURBOHALER [Suspect]
     Indication: CHRONIC OBSTRUCTIVE PULMONARY DISEASE
     Dosage: 80/4.5 UG DAILY
     Route: 055
     Dates: start: 20120725, end: 201209
  2. SPIRIVA [Concomitant]
  3. OMEGA-3 FATTY ACIDS [Concomitant]

REACTIONS (1)
  - Visual acuity reduced [Recovering/Resolving]
